FAERS Safety Report 16111041 (Version 1)
Quarter: 2019Q1

REPORT INFORMATION
  Report Type: Spontaneous
  Country: US (occurrence: US)
  Receive Date: 20190325
  Receipt Date: 20190325
  Transmission Date: 20190418
  Serious: No
  Sender: FDA-Public Use
  Company Number: US-ASTRAZENECA-2019SE32165

PATIENT
  Sex: Female

DRUGS (1)
  1. PULMICORT FLEXHALER [Suspect]
     Active Substance: BUDESONIDE
     Dosage: 180.0UG AS REQUIRED
     Route: 055

REACTIONS (7)
  - Device failure [Unknown]
  - Dyspnoea [Unknown]
  - Aphonia [Unknown]
  - Medication error [Unknown]
  - Confusional state [Unknown]
  - Intentional product misuse [Unknown]
  - Malaise [Unknown]
